FAERS Safety Report 5524276-2 (Version None)
Quarter: 2007Q4

REPORT INFORMATION
  Report Type: 
  Country: None (occurrence: None)
  Receive Date: 20071121
  Receipt Date: 20071114
  Transmission Date: 20080405
  Serious: Yes (Hospitalization, Other)
  Sender: FDA-Public Use
  Company Number: DE-PFIZER INC-2007089390

PATIENT
  Sex: Female

DRUGS (7)
  1. REVATIO [Suspect]
     Indication: PULMONARY HYPERTENSION
  2. LEVOTHYROXINE SODIUM [Concomitant]
  3. SPIRONOLACTONE [Concomitant]
  4. DIURETICS [Concomitant]
  5. PANTOPRAZOLE SODIUM [Concomitant]
  6. MARCUMAR [Concomitant]
  7. BOSENTAN [Concomitant]

REACTIONS (2)
  - CERVICOBRACHIAL SYNDROME [None]
  - PARAESTHESIA [None]
